FAERS Safety Report 5176754-6 (Version None)
Quarter: 2006Q4

REPORT INFORMATION
  Report Type: 
  Country: None (occurrence: None)
  Receive Date: 20061212
  Receipt Date: 20061212
  Transmission Date: 20070319
  Serious: Yes (Life-Threatening, Hospitalization)
  Sender: FDA-Public Use
  Company Number: None

PATIENT
  Age: 63 Year
  Sex: Male
  Weight: 99.7913 kg

DRUGS (1)
  1. LISONPRIL [Suspect]
     Indication: CARDIAC DISORDER
     Dates: start: 20060721, end: 20061210

REACTIONS (5)
  - DYSPHAGIA [None]
  - DYSPNOEA [None]
  - FALL [None]
  - THROAT TIGHTNESS [None]
  - TONGUE OEDEMA [None]
